FAERS Safety Report 12175256 (Version 2)
Quarter: 2016Q2

REPORT INFORMATION
  Report Type: Other
  Country: US (occurrence: US)
  Receive Date: 20160314
  Receipt Date: 20160502
  Transmission Date: 20160815
  Serious: Yes (Death)
  Sender: FDA-Public Use
  Company Number: US-ACORDA-ACO_122001_2016

PATIENT
  Sex: Female

DRUGS (1)
  1. AMPYRA [Suspect]
     Active Substance: DALFAMPRIDINE
     Indication: PRODUCT USED FOR UNKNOWN INDICATION
     Dosage: 10 MG, Q 12 HRS
     Route: 048
     Dates: start: 20151117

REACTIONS (1)
  - Death [Fatal]
